FAERS Safety Report 24686767 (Version 1)
Quarter: 2024Q4

REPORT INFORMATION
  Report Type: Spontaneous
  Country: DE (occurrence: DE)
  Receive Date: 20241202
  Receipt Date: 20241202
  Transmission Date: 20250115
  Serious: Yes (Other)
  Sender: IOVANCE BIOTHERAPEUTICS MANUFACTURING LLC
  Company Number: DE-IOVANCE BIOTHERAPEUTICS INC.-IOV2024000047

PATIENT

DRUGS (2)
  1. ALDESLEUKIN [Suspect]
     Active Substance: ALDESLEUKIN
     Indication: Acral lentiginous melanoma
     Dosage: 3 MILLION IE/ML, ADMINISTERED 2-3 TIMES PER WEEK
     Route: 026
  2. PEMBROLIZUMAB [Suspect]
     Active Substance: PEMBROLIZUMAB
     Indication: Acral lentiginous melanoma
     Dosage: 2 MG/KG, QW3
     Route: 042

REACTIONS (2)
  - Metastases to peritoneum [Unknown]
  - Metastases to lung [Unknown]
